FAERS Safety Report 17926402 (Version 3)
Quarter: 2020Q3

REPORT INFORMATION
  Report Type: Spontaneous
  Country: US (occurrence: US)
  Receive Date: 20200622
  Receipt Date: 20200714
  Transmission Date: 20201103
  Serious: Yes (Death, Hospitalization, Other)
  Sender: FDA-Public Use
  Company Number: US-SEATTLE GENETICS-2020SGN02615

PATIENT
  Sex: Female

DRUGS (2)
  1. XELODA [Suspect]
     Active Substance: CAPECITABINE
     Indication: BREAST CANCER FEMALE
     Dosage: UNK
     Dates: start: 20200605, end: 20200608
  2. TUKYSA [Suspect]
     Active Substance: TUCATINIB
     Indication: BREAST CANCER FEMALE
     Dosage: UNK
     Dates: start: 20200605, end: 20200608

REACTIONS (10)
  - Pain [Unknown]
  - Device related sepsis [Unknown]
  - Staphylococcal infection [Unknown]
  - Fatigue [Unknown]
  - Death [Fatal]
  - Brain oedema [Unknown]
  - Back pain [Unknown]
  - Muscular weakness [Unknown]
  - Haemorrhage [Unknown]
  - Dysstasia [Unknown]
